FAERS Safety Report 25178421 (Version 1)
Quarter: 2025Q2

REPORT INFORMATION
  Report Type: Spontaneous
  Country: AT (occurrence: AT)
  Receive Date: 20250409
  Receipt Date: 20250409
  Transmission Date: 20250716
  Serious: Yes (Other)
  Sender: BAYER
  Company Number: AT-BAYER-2025A044903

PATIENT
  Age: 28 Year
  Sex: Female

DRUGS (1)
  1. LEVONORGESTREL [Suspect]
     Active Substance: LEVONORGESTREL
     Indication: Contraception
     Dosage: 14?G/DAY
     Route: 015
     Dates: start: 20230601

REACTIONS (12)
  - Suicidal ideation [Unknown]
  - Depressed mood [Unknown]
  - Vulvovaginal candidiasis [Not Recovered/Not Resolved]
  - Chest pain [Unknown]
  - Dysmenorrhoea [Unknown]
  - Mood swings [Unknown]
  - Libido disorder [Unknown]
  - Feeling abnormal [Unknown]
  - Anxiety [Unknown]
  - Panic attack [Unknown]
  - Headache [Not Recovered/Not Resolved]
  - Loss of libido [Not Recovered/Not Resolved]
